FAERS Safety Report 22052741 (Version 1)
Quarter: 2023Q1

REPORT INFORMATION
  Report Type: Spontaneous
  Country: US (occurrence: US)
  Receive Date: 20230302
  Receipt Date: 20230302
  Transmission Date: 20230418
  Serious: Yes (Hospitalization, Other)
  Sender: FDA-Public Use
  Company Number: US-EDENBRIDGE PHARMACEUTICALS, LLC-US-2023EDE000007

PATIENT
  Age: 61 Year
  Sex: Female
  Weight: 45.5 kg

DRUGS (3)
  1. IVERMECTIN [Suspect]
     Active Substance: IVERMECTIN
     Indication: COVID-19 prophylaxis
     Dosage: 18 MG, QD, FOR 5 DAYS
     Route: 065
  2. IVERMECTIN [Suspect]
     Active Substance: IVERMECTIN
     Dosage: 18 MG, WEEKLY, FOR 12 MONTHS
     Route: 065
  3. IVERMECTIN [Suspect]
     Active Substance: IVERMECTIN
     Dosage: ADDITIONAL DOSES (UNKNOWN DOSAGE AND FREQUNECY)
     Route: 065

REACTIONS (17)
  - Pneumoperitoneum [Unknown]
  - Pneumatosis intestinalis [Unknown]
  - Gastric perforation [Unknown]
  - Gastrooesophageal reflux disease [Unknown]
  - Syncope [Unknown]
  - Weight decreased [Unknown]
  - Metabolic alkalosis [Unknown]
  - Hypokalaemia [Unknown]
  - Hypocalcaemia [Unknown]
  - Hypophosphataemia [Unknown]
  - Hypochloraemia [Unknown]
  - Nausea [Unknown]
  - Vomiting [Unknown]
  - Diarrhoea [Unknown]
  - Asthenia [Unknown]
  - Off label use [Unknown]
  - Intentional product misuse [Unknown]
